FAERS Safety Report 13600223 (Version 3)
Quarter: 2017Q3

REPORT INFORMATION
  Report Type: Spontaneous
  Country: US (occurrence: US)
  Receive Date: 20170601
  Receipt Date: 20170803
  Transmission Date: 20171127
  Serious: No
  Sender: FDA-Public Use
  Company Number: PHEH2017US015968

PATIENT
  Sex: Female

DRUGS (1)
  1. PREDNISOLONE ACETATE. [Suspect]
     Active Substance: PREDNISOLONE ACETATE
     Indication: PREOPERATIVE CARE
     Dosage: UNK
     Route: 047

REACTIONS (3)
  - Eye irritation [Unknown]
  - Product quality issue [Unknown]
  - Foreign body in eye [Unknown]
